FAERS Safety Report 6722651-1 (Version None)
Quarter: 2010Q2

REPORT INFORMATION
  Report Type: 
  Country: None (occurrence: None)
  Receive Date: 20100512
  Receipt Date: 20100506
  Transmission Date: 20101027
  Serious: Yes (Death, Hospitalization, Other)
  Sender: FDA-Public Use
  Company Number: US-PFIZER INC-2008017415

PATIENT
  Sex: Female
  Weight: 111 kg

DRUGS (2)
  1. CELECOXIB [Suspect]
     Indication: MULTIPLE FRACTURES
     Dosage: 200 MG, 1X/DAY
     Dates: start: 20020312, end: 20040101
  2. LIPITOR [Suspect]
     Dosage: UNK

REACTIONS (5)
  - CARDIAC DISORDER [None]
  - CARDIAC FAILURE CONGESTIVE [None]
  - CEREBROVASCULAR ACCIDENT [None]
  - CHEST PAIN [None]
  - MYOCARDIAL INFARCTION [None]
